FAERS Safety Report 19778456 (Version 1)
Quarter: 2021Q3

REPORT INFORMATION
  Report Type: Spontaneous
  Country: US (occurrence: US)
  Receive Date: 20210831
  Receipt Date: 20210831
  Transmission Date: 20211014
  Serious: Yes (Other)
  Sender: FDA-Public Use
  Company Number: None

PATIENT
  Age: 71 Year
  Sex: Female
  Weight: 62.6 kg

DRUGS (7)
  1. XARELTO [Concomitant]
     Active Substance: RIVAROXABAN
  2. SUCRALFATE. [Suspect]
     Active Substance: SUCRALFATE
     Indication: GASTROOESOPHAGEAL REFLUX DISEASE
     Dosage: ?          QUANTITY:4 PILLS A DAY;?
     Route: 048
     Dates: start: 20210821, end: 20210823
  3. TUMERIC [Concomitant]
     Active Substance: HERBALS\TURMERIC
  4. FINACEA FOR ROSECEA FACE [Concomitant]
  5. SYNTHROID [Concomitant]
     Active Substance: LEVOTHYROXINE SODIUM
  6. GLUCOSAMINE [Concomitant]
     Active Substance: GLUCOSAMINE
  7. VIT D [Concomitant]
     Active Substance: VITAMIN D NOS

REACTIONS (1)
  - Insomnia [None]

NARRATIVE: CASE EVENT DATE: 20210821
